FAERS Safety Report 20015645 (Version 1)
Quarter: 2021Q4

REPORT INFORMATION
  Report Type: Spontaneous
  Country: US (occurrence: None)
  Receive Date: 20211101
  Receipt Date: 20211101
  Transmission Date: 20220303
  Serious: Yes (Life-Threatening, Hospitalization)
  Sender: FDA-Public Use
  Company Number: None

PATIENT
  Age: 72 Year
  Sex: Male
  Weight: 87.09 kg

DRUGS (1)
  1. ATORVASTATIN CALCIUM [Suspect]
     Active Substance: ATORVASTATIN CALCIUM
     Indication: Hyperlipidaemia
     Dosage: FREQUENCY : DAILY;?
     Route: 048
     Dates: start: 20210727, end: 20210903

REACTIONS (10)
  - Confusional state [None]
  - Hypophagia [None]
  - Malaise [None]
  - Back pain [None]
  - Dyspnoea [None]
  - Myalgia [None]
  - Nausea [None]
  - Vomiting [None]
  - Rhabdomyolysis [None]
  - Respiratory depression [None]

NARRATIVE: CASE EVENT DATE: 20210903
